FAERS Safety Report 18084841 (Version 1)
Quarter: 2020Q3

REPORT INFORMATION
  Report Type: Spontaneous
  Country: US (occurrence: US)
  Receive Date: 20200728
  Receipt Date: 20200728
  Transmission Date: 20201103
  Serious: No
  Sender: FDA-Public Use
  Company Number: US-PERRIGO-20US004922

PATIENT
  Age: 25 Year
  Sex: Male
  Weight: 82.54 kg

DRUGS (2)
  1. FINASTERIDE. [Suspect]
     Active Substance: FINASTERIDE
     Indication: ALOPECIA
     Dosage: 1 MG, QD
     Route: 048
     Dates: start: 20200304, end: 20200407
  2. MINOXIDIL. [Suspect]
     Active Substance: MINOXIDIL
     Indication: ALOPECIA
     Dosage: 1 ML, BID
     Route: 061
     Dates: start: 20200304, end: 20200331

REACTIONS (2)
  - Headache [Recovered/Resolved]
  - Gynaecomastia [Not Recovered/Not Resolved]

NARRATIVE: CASE EVENT DATE: 20200305
